FAERS Safety Report 5454848-5 (Version None)
Quarter: 2007Q3

REPORT INFORMATION
  Report Type: 
  Country: None (occurrence: None)
  Receive Date: 20070917
  Receipt Date: 20061006
  Transmission Date: 20080115
  Serious: No
  Sender: FDA-Public Use
  Company Number: US-ASTRAZENECA-2006UW19509

PATIENT
  Age: 42 Year
  Sex: Male
  Weight: 95.3 kg

DRUGS (3)
  1. SEROQUEL [Suspect]
     Indication: AFFECTIVE DISORDER
     Dosage: 50 MG BID, 100 MG HS
     Route: 048
  2. CYMBALTA [Concomitant]
  3. NEURONTIN [Concomitant]

REACTIONS (6)
  - BACK PAIN [None]
  - BODY TEMPERATURE INCREASED [None]
  - GAIT DISTURBANCE [None]
  - HYPERHIDROSIS [None]
  - INFECTION [None]
  - MUSCULOSKELETAL STIFFNESS [None]
